FAERS Safety Report 7311607-6 (Version None)
Quarter: 2011Q1

REPORT INFORMATION
  Report Type: 
  Country: None (occurrence: None)
  Receive Date: 20110224
  Receipt Date: 20110217
  Transmission Date: 20110831
  Serious: Yes (Death, Hospitalization, Other)
  Sender: FDA-Public Use
  Company Number: US-GENZYME-CLOF-1001178

PATIENT
  Sex: Female
  Weight: 51.6 kg

DRUGS (9)
  1. ETOPOSIDE [Suspect]
     Indication: ACUTE LYMPHOCYTIC LEUKAEMIA
     Dosage: 150 MG, QDX5
     Route: 042
     Dates: start: 20100818, end: 20100822
  2. CEFEPIME [Concomitant]
     Indication: FEBRILE NEUTROPENIA
     Dosage: 2 G, TID
     Route: 042
     Dates: start: 20100819, end: 20100828
  3. CLOLAR [Suspect]
     Indication: ACUTE LYMPHOCYTIC LEUKAEMIA
     Dosage: 30 MG, QDX5
     Route: 042
     Dates: start: 20100819, end: 20100823
  4. ZOFRAN [Concomitant]
     Indication: NAUSEA
     Dosage: 16 MG, PRN
     Route: 042
     Dates: start: 20100818, end: 20100824
  5. MITOXANTRONE [Suspect]
     Indication: ACUTE LYMPHOCYTIC LEUKAEMIA
     Dosage: 12 MG, QDX3
     Route: 042
     Dates: start: 20100818, end: 20100820
  6. PROTONIX [Concomitant]
     Indication: OESOPHAGITIS
     Dosage: 40 MG, QD
     Route: 042
     Dates: start: 20100818, end: 20100830
  7. ALLOPURINOL [Concomitant]
     Indication: PROPHYLAXIS
     Dosage: 300 MG, QD
     Route: 048
     Dates: start: 20100819, end: 20100825
  8. DARVOCET-N 100 [Concomitant]
     Indication: PAIN
     Dosage: 1 TAB,  Q4HR PRN
     Route: 048
     Dates: start: 20100818, end: 20100819
  9. LOPERAMIDE [Concomitant]
     Indication: DIARRHOEA
     Dosage: 2 MG, PRN
     Route: 048
     Dates: start: 20100818, end: 20100902

REACTIONS (12)
  - PNEUMONIA [None]
  - ABDOMINAL PAIN [None]
  - MUCOSAL INFLAMMATION [None]
  - HYPOTENSION [None]
  - SEPSIS [None]
  - LIVER FUNCTION TEST ABNORMAL [None]
  - HYPERBILIRUBINAEMIA [None]
  - CHOLECYSTITIS [None]
  - DEHYDRATION [None]
  - DIARRHOEA [None]
  - PYREXIA [None]
  - COLITIS [None]
